FAERS Safety Report 7041396-4 (Version None)
Quarter: 2010Q4

REPORT INFORMATION
  Report Type: 
  Country: None (occurrence: None)
  Receive Date: 20101013
  Receipt Date: 20101005
  Transmission Date: 20110411
  Serious: Yes (Hospitalization, Other)
  Sender: FDA-Public Use
  Company Number: US-BAYER-201020105BCC

PATIENT
  Age: 82 Year
  Sex: Female
  Weight: 68 kg

DRUGS (4)
  1. MINT PHILLIPS' MILK OF MAGNESIA [Suspect]
     Indication: CONSTIPATION
     Dosage: 4 TABLESPOONS
     Route: 048
     Dates: start: 20100907, end: 20100101
  2. COZAAR [Concomitant]
  3. EVISTA [Concomitant]
  4. IV FLUIDS [Concomitant]
     Route: 042
     Dates: start: 20100907

REACTIONS (4)
  - ABDOMINAL PAIN [None]
  - ABDOMINAL PAIN UPPER [None]
  - FAECES HARD [None]
  - SENSATION OF FOREIGN BODY [None]
